FAERS Safety Report 26001327 (Version 1)
Quarter: 2025Q4

REPORT INFORMATION
  Report Type: Spontaneous
  Country: EU (occurrence: EU)
  Receive Date: 20251105
  Receipt Date: 20251105
  Transmission Date: 20260118
  Serious: Yes (Hospitalization, Other)
  Sender: AMGEN
  Company Number: EU-AMGEN-POLSP2025213089

PATIENT
  Age: 62 Year
  Sex: Male

DRUGS (8)
  1. PEGFILGRASTIM [Suspect]
     Active Substance: PEGFILGRASTIM
     Indication: Prophylaxis
     Dosage: UNK
     Route: 065
     Dates: start: 20221018
  2. PEMBROLIZUMAB [Concomitant]
     Active Substance: PEMBROLIZUMAB
     Indication: Adenocarcinoma
     Dosage: 400 MILLIGRAM
     Route: 065
     Dates: start: 20221018
  3. PEMBROLIZUMAB [Concomitant]
     Active Substance: PEMBROLIZUMAB
     Dosage: 500 MILLIGRAM
     Route: 065
     Dates: start: 20230112
  4. PEMBROLIZUMAB [Concomitant]
     Active Substance: PEMBROLIZUMAB
     Dosage: UNK
     Route: 065
     Dates: start: 20240226
  5. PEMBROLIZUMAB [Concomitant]
     Active Substance: PEMBROLIZUMAB
     Dosage: 500 MILLIGRAM
     Route: 065
     Dates: start: 20250513
  6. CISPLATIN [Concomitant]
     Active Substance: CISPLATIN
     Indication: Adenocarcinoma
     Dosage: 75 MILLIGRAM/SQ. METER
     Route: 065
     Dates: start: 20221018
  7. PEMETREXED [Concomitant]
     Active Substance: PEMETREXED
     Indication: Adenocarcinoma
     Dosage: 50 MILLIGRAM/SQ. METER
     Dates: start: 20221018
  8. PEMETREXED [Concomitant]
     Active Substance: PEMETREXED
     Dosage: UNK MILLIGRAM/SQ. METER A 20% REDUCTION IN THE DOSE
     Route: 065
     Dates: start: 20230112

REACTIONS (7)
  - Weight decreased [Unknown]
  - Anaemia [Unknown]
  - Meningitis viral [Recovering/Resolving]
  - Dehydration [Unknown]
  - Renal disorder [Unknown]
  - Blood creatinine increased [Unknown]
  - General physical health deterioration [Recovered/Resolved]

NARRATIVE: CASE EVENT DATE: 20221001
